FAERS Safety Report 4366120-5 (Version None)
Quarter: 2004Q2

REPORT INFORMATION
  Report Type: 
  Country: None (occurrence: None)
  Receive Date: 20040524
  Receipt Date: 20040514
  Transmission Date: 20050107
  Serious: Yes (Hospitalization)
  Sender: FDA-Public Use
  Company Number: 2004-05-0798

PATIENT
  Age: 1 Month
  Sex: Male

DRUGS (4)
  1. CELESTONE [Suspect]
     Indication: RHINORRHOEA
     Dosage: SEE IMAGE
     Route: 048
     Dates: start: 20040417, end: 20040419
  2. CELESTONE [Suspect]
     Indication: RHINORRHOEA
     Dosage: SEE IMAGE
     Route: 048
     Dates: start: 20040417, end: 20040427
  3. CELESTONE [Suspect]
     Indication: RHINORRHOEA
     Dosage: SEE IMAGE
     Route: 048
     Dates: start: 20040420, end: 20040427
  4. MUCOMYST [Suspect]
     Indication: RHINORRHOEA
     Dosage: BID ORAL
     Route: 048
     Dates: start: 20040417, end: 20040426

REACTIONS (5)
  - BRONCHITIS [None]
  - CONDITION AGGRAVATED [None]
  - LIVEDO RETICULARIS [None]
  - NORMOCHROMIC NORMOCYTIC ANAEMIA [None]
  - WEIGHT DECREASED [None]
